FAERS Safety Report 19919511 (Version 1)
Quarter: 2021Q4

REPORT INFORMATION
  Report Type: Spontaneous
  Country: TW (occurrence: TW)
  Receive Date: 20211005
  Receipt Date: 20211005
  Transmission Date: 20220303
  Serious: Yes (Other)
  Sender: FDA-Public Use
  Company Number: TW-UNICHEM PHARMACEUTICALS (USA) INC-UCM202109-000895

PATIENT
  Age: 68 Year
  Sex: Female

DRUGS (2)
  1. DONEPEZIL [Suspect]
     Active Substance: DONEPEZIL
     Indication: Dementia Alzheimer^s type
     Dates: start: 20190924
  2. DONEPEZIL [Suspect]
     Active Substance: DONEPEZIL
     Dates: start: 20191023

REACTIONS (1)
  - Parkinsonism [Recovered/Resolved]
